FAERS Safety Report 5126684-0 (Version None)
Quarter: 2006Q4

REPORT INFORMATION
  Report Type: 
  Country: None (occurrence: None)
  Receive Date: 20061013
  Receipt Date: 20061004
  Transmission Date: 20070319
  Serious: Yes (Hospitalization)
  Sender: FDA-Public Use
  Company Number: FR-ABBOTT-06P-056-0345717-00

PATIENT
  Age: 68 Year
  Sex: Female

DRUGS (2)
  1. ODRIK [Suspect]
     Indication: ESSENTIAL HYPERTENSION
     Route: 048
     Dates: start: 20010715, end: 20060601
  2. CELIPROLOL CHLORHYDRATE [Suspect]
     Indication: ESSENTIAL HYPERTENSION
     Route: 048
     Dates: start: 20040715, end: 20060630

REACTIONS (2)
  - DERMATITIS ALLERGIC [None]
  - TOXIC SKIN ERUPTION [None]
